FAERS Safety Report 6940042-5 (Version None)
Quarter: 2010Q3

REPORT INFORMATION
  Report Type: 
  Country: None (occurrence: None)
  Receive Date: 20100825
  Receipt Date: 20100809
  Transmission Date: 20110219
  Serious: Yes (Hospitalization, Other)
  Sender: FDA-Public Use
  Company Number: GB-RANBAXY-2010RR-37472

PATIENT
  Age: 25 Year
  Sex: Female

DRUGS (3)
  1. METFORMIN HYDROCHLORIDE [Suspect]
     Indication: DIABETES MELLITUS
     Route: 065
  2. REGULAR INSULIN [Suspect]
     Indication: DIABETES MELLITUS
     Dosage: 200 IU, UNK
     Route: 058
  3. ACTOS [Suspect]
     Indication: DIABETES MELLITUS
     Route: 065

REACTIONS (2)
  - DIABETES MELLITUS INADEQUATE CONTROL [None]
  - INFARCTION [None]
